FAERS Safety Report 21840477 (Version 1)
Quarter: 2023Q1

REPORT INFORMATION
  Report Type: Spontaneous
  Country: AT (occurrence: AT)
  Receive Date: 20230110
  Receipt Date: 20230110
  Transmission Date: 20230417
  Serious: Yes (Other)
  Sender: FDA-Public Use
  Company Number: None

PATIENT
  Age: 52 Year
  Sex: Female

DRUGS (1)
  1. CARBOPLATIN [Suspect]
     Active Substance: CARBOPLATIN
     Indication: Chemotherapy
     Dosage: UNK (GEMASS FACHINFO)
     Route: 065
     Dates: start: 20221021, end: 20221021

REACTIONS (6)
  - Depressed level of consciousness [Unknown]
  - Conjunctivitis [Unknown]
  - Dyspnoea [Unknown]
  - Type I hypersensitivity [Unknown]
  - Abdominal pain [Unknown]
  - Erythema [Unknown]

NARRATIVE: CASE EVENT DATE: 20221021
